FAERS Safety Report 21840637 (Version 2)
Quarter: 2023Q2

REPORT INFORMATION
  Report Type: Report from Study
  Country: EG (occurrence: EG)
  Receive Date: 20230110
  Receipt Date: 20230525
  Transmission Date: 20230722
  Serious: Yes (Other)
  Sender: FDA-Public Use
  Company Number: EG-JNJFOC-20230101784

PATIENT
  Age: 59 Year
  Sex: Female
  Weight: 92 kg

DRUGS (7)
  1. DARZALEX [Suspect]
     Active Substance: DARATUMUMAB
     Indication: Plasma cell myeloma
     Dosage: 8 DOSES (1DOSE/WEEK)
     Route: 065
     Dates: start: 20220616, end: 20220819
  2. DARZALEX [Suspect]
     Active Substance: DARATUMUMAB
     Dosage: 8 DOSES (1DOSE/2 WEEK)
     Route: 065
     Dates: start: 20220826, end: 20221213
  3. DARZALEX [Suspect]
     Active Substance: DARATUMUMAB
     Dosage: (LAST DOSE WAS THE 16TH DOSE
     Route: 065
     Dates: end: 20221216
  4. VELCADE [Concomitant]
     Active Substance: BORTEZOMIB
     Indication: Plasma cell myeloma
  5. DEXAMETHASONE [Concomitant]
     Active Substance: DEXAMETHASONE
     Indication: Plasma cell myeloma
  6. BISOPROLOL FUMARATE [Concomitant]
     Active Substance: BISOPROLOL FUMARATE
     Indication: Product used for unknown indication
     Route: 065
  7. LENALIDOMIDE [Concomitant]
     Active Substance: LENALIDOMIDE
     Indication: Plasma cell myeloma

REACTIONS (3)
  - Degenerative bone disease [Not Recovered/Not Resolved]
  - C-reactive protein increased [Not Recovered/Not Resolved]
  - Bone pain [Unknown]

NARRATIVE: CASE EVENT DATE: 20221226
